FAERS Safety Report 4324166-7 (Version None)
Quarter: 2004Q1

REPORT INFORMATION
  Report Type: 
  Country: None (occurrence: None)
  Receive Date: 20040326
  Receipt Date: 20040105
  Transmission Date: 20041129
  Serious: No
  Sender: FDA-Public Use
  Company Number: US-GLAXOSMITHKLINE-A0491304A

PATIENT
  Age: 75 Year
  Sex: Female

DRUGS (3)
  1. ADVAIR DISKUS 100/50 [Suspect]
     Dosage: 1PUFF TWICE PER DAY
     Route: 055
     Dates: start: 20031110, end: 20031201
  2. FOSAMAX [Concomitant]
  3. COUMADIN [Concomitant]

REACTIONS (3)
  - CHEST PAIN [None]
  - HOARSENESS [None]
  - TOOTHACHE [None]
